FAERS Safety Report 7942866-4 (Version None)
Quarter: 2011Q4

REPORT INFORMATION
  Report Type: 
  Country: None (occurrence: None)
  Receive Date: 20111128
  Receipt Date: 20111122
  Transmission Date: 20120403
  Serious: Yes (Hospitalization, Disabling)
  Sender: FDA-Public Use
  Company Number: US-MERCK-1107USA03589

PATIENT
  Age: 56 Year
  Sex: Female

DRUGS (2)
  1. FOSAMAX [Suspect]
     Route: 065
     Dates: start: 20020101, end: 20090101
  2. FOSAMAX [Suspect]
     Indication: OSTEOPOROSIS
     Route: 048
     Dates: start: 19990101, end: 20091201

REACTIONS (10)
  - FEMUR FRACTURE [None]
  - ANAEMIA POSTOPERATIVE [None]
  - ANXIETY [None]
  - DEPRESSION [None]
  - RASH [None]
  - FOOT FRACTURE [None]
  - HEAD INJURY [None]
  - FALL [None]
  - ENDODONTIC PROCEDURE [None]
  - OSTEOARTHRITIS [None]
